FAERS Safety Report 5520771-0 (Version None)
Quarter: 2007Q4

REPORT INFORMATION
  Report Type: 
  Country: None (occurrence: None)
  Receive Date: 20071119
  Receipt Date: 20071106
  Transmission Date: 20080405
  Serious: Yes (Other)
  Sender: FDA-Public Use
  Company Number: US-PFIZER INC-2007095220

PATIENT
  Sex: Female
  Weight: 53.5 kg

DRUGS (9)
  1. CHANTIX [Suspect]
     Indication: SMOKING CESSATION THERAPY
     Route: 048
     Dates: start: 20070304, end: 20070317
  2. ADVAIR DISKUS 100/50 [Concomitant]
  3. COMBIVENT [Concomitant]
  4. PERCOCET [Concomitant]
  5. XANAX [Concomitant]
  6. LEXAPRO [Concomitant]
  7. SIMVASTATIN [Concomitant]
  8. NEXIUM [Concomitant]
  9. VITAMIN B-12 [Concomitant]

REACTIONS (5)
  - BEDRIDDEN [None]
  - FATIGUE [None]
  - INSOMNIA [None]
  - NAUSEA [None]
  - NIGHTMARE [None]
